FAERS Safety Report 25127279 (Version 2)
Quarter: 2025Q3

REPORT INFORMATION
  Report Type: Spontaneous
  Country: US (occurrence: US)
  Receive Date: 20250327
  Receipt Date: 20250709
  Transmission Date: 20251021
  Serious: Yes (Hospitalization, Other)
  Sender: COOPERSURGICAL
  Company Number: US-COOPERSURGICAL, INC.-2025CPS002190

PATIENT
  Age: 29 Year
  Sex: Female
  Weight: 117.01 kg

DRUGS (1)
  1. PARAGARD T 380A [Suspect]
     Active Substance: COPPER
     Route: 015
     Dates: start: 201005

REACTIONS (15)
  - Female sterilisation [Recovered/Resolved]
  - Laparotomy [Recovered/Resolved]
  - Endometrial cancer [Recovered/Resolved]
  - Hysterectomy [Recovered/Resolved]
  - Vaginal haemorrhage [Unknown]
  - Reproductive complication associated with device [Not Recovered/Not Resolved]
  - Device breakage [Recovered/Resolved]
  - Foreign body in reproductive tract [Recovered/Resolved]
  - Complication of device removal [Recovered/Resolved]
  - Pregnancy with contraceptive device [Recovered/Resolved]
  - Drug ineffective [Unknown]
  - Emotional disorder [Unknown]
  - Heavy menstrual bleeding [Recovered/Resolved]
  - Intentional device use issue [Recovered/Resolved]
  - Off label use [Unknown]

NARRATIVE: CASE EVENT DATE: 20130401
